FAERS Safety Report 20945880 (Version 1)
Quarter: 2022Q2

REPORT INFORMATION
  Report Type: Spontaneous
  Country: US (occurrence: US)
  Receive Date: 20220610
  Receipt Date: 20220610
  Transmission Date: 20220721
  Serious: No
  Sender: FDA-Public Use
  Company Number: US-PFIZER INC-202101643225

PATIENT
  Age: 71 Year
  Sex: Male
  Weight: 78.47 kg

DRUGS (1)
  1. HYDROXYZINE PAMOATE [Suspect]
     Active Substance: HYDROXYZINE PAMOATE
     Indication: Pruritus
     Dosage: 12.5 MG (TAKE 1/2 PILL OCCASIONALLY FOR ITCHING)

REACTIONS (2)
  - Intentional product use issue [Unknown]
  - Somnolence [Unknown]
